FAERS Safety Report 21596040 (Version 1)
Quarter: 2022Q4

REPORT INFORMATION
  Report Type: Spontaneous
  Country: DE (occurrence: DE)
  Receive Date: 20221115
  Receipt Date: 20221115
  Transmission Date: 20230113
  Serious: Yes (Hospitalization)
  Sender: FDA-Public Use
  Company Number: None

PATIENT
  Age: 89 Year
  Sex: Female

DRUGS (10)
  1. SPIRONOLACTONE [Interacting]
     Active Substance: SPIRONOLACTONE
     Indication: Product used for unknown indication
     Dosage: 25 MG, 1-0-0-0
  2. RAMIPRIL [Interacting]
     Active Substance: RAMIPRIL
     Indication: Product used for unknown indication
     Dosage: 5 MG, 1-0-0-1
  3. POTASSIUM [Interacting]
     Active Substance: POTASSIUM
     Indication: Product used for unknown indication
     Dosage: 260 MG, EVERY OTHER DAY AT NOON
  4. POTASSIUM CHLORIDE [Interacting]
     Active Substance: POTASSIUM CHLORIDE
     Indication: Product used for unknown indication
     Dosage: 600 MG, 2-0-2-0
  5. PREGABALIN [Concomitant]
     Active Substance: PREGABALIN
     Dosage: 50 MG, 0-0-1-0
  6. VERAPAMIL [Concomitant]
     Active Substance: VERAPAMIL HYDROCHLORIDE
     Dosage: 120 MG, 0-1-0-0
  7. LEVOTHYROXINE SODIUM [Concomitant]
     Active Substance: LEVOTHYROXINE SODIUM
     Dosage: 50 MCG, MONDAY TO FRIDAY ONE TABLET
  8. APIXABAN [Concomitant]
     Active Substance: APIXABAN
     Dosage: 2.5 MG, 1-0-1-0
  9. MAGNESIUM [Concomitant]
     Active Substance: MAGNESIUM
     Dosage: 1-0-0-0
  10. VERAPAMIL [Concomitant]
     Active Substance: VERAPAMIL HYDROCHLORIDE
     Dosage: 80 MG, 1-0-1-0

REACTIONS (4)
  - Dyspnoea [Unknown]
  - Palpitations [Unknown]
  - Labelled drug-drug interaction medication error [Unknown]
  - Therapeutic drug monitoring analysis not performed [Unknown]
